FAERS Safety Report 16650118 (Version 5)
Quarter: 2022Q1

REPORT INFORMATION
  Report Type: Spontaneous
  Country: US (occurrence: US)
  Receive Date: 20190731
  Receipt Date: 20220207
  Transmission Date: 20220423
  Serious: Yes (Other)
  Sender: FDA-Public Use
  Company Number: US-ALEXION PHARMACEUTICALS INC.-A201911359

PATIENT
  Sex: Male

DRUGS (2)
  1. STRENSIQ [Suspect]
     Active Substance: ASFOTASE ALFA
     Indication: Hypophosphatasia
     Dosage: UNK, QW (6 INJECTIONS A WEEK)
     Route: 065
     Dates: start: 2018
  2. HUMIRA [Concomitant]
     Active Substance: ADALIMUMAB
     Indication: Crohn^s disease
     Dosage: UNK, Q2W  (2 INJECTIONS)
     Route: 065

REACTIONS (8)
  - Shoulder operation [Unknown]
  - Grip strength decreased [Unknown]
  - Fatigue [Unknown]
  - Malaise [Unknown]
  - Skin reaction [Unknown]
  - Musculoskeletal pain [Unknown]
  - Bone pain [Unknown]
  - Myalgia [Unknown]

NARRATIVE: CASE EVENT DATE: 20220201
